FAERS Safety Report 16699902 (Version 1)
Quarter: 2019Q3

REPORT INFORMATION
  Report Type: Spontaneous
  Country: SK (occurrence: SK)
  Receive Date: 20190813
  Receipt Date: 20190813
  Transmission Date: 20191004
  Serious: Yes (Congenital Anomaly)
  Sender: FDA-Public Use
  Company Number: SK-ALLERGAN-1932952US

PATIENT

DRUGS (1)
  1. FOSFOMYCIN TROMETHAMINE - BP [Suspect]
     Active Substance: FOSFOMYCIN TROMETHAMINE
     Indication: EXPOSURE DURING PREGNANCY
     Dosage: 3 G
     Route: 064

REACTIONS (1)
  - Trisomy 13 [Unknown]

NARRATIVE: CASE EVENT DATE: 201905
